FAERS Safety Report 4457186-2 (Version None)
Quarter: 2004Q3

REPORT INFORMATION
  Report Type: 
  Country: None (occurrence: None)
  Receive Date: 20040830
  Receipt Date: 20040505
  Transmission Date: 20050211
  Serious: Yes (Hospitalization)
  Sender: FDA-Public Use
  Company Number: 206705

PATIENT
  Sex: Male

DRUGS (8)
  1. XOLAIR [Suspect]
     Dosage: 300 MG, Q4W, SUBCUTANEOUS
     Route: 058
     Dates: start: 20031209, end: 20040429
  2. XOPENEX [Concomitant]
  3. ALBUTEROL NEBULIZER (ALBUTEROL, ALBUTEROL SULFATE) [Concomitant]
  4. FOSAMAX [Concomitant]
  5. VITAMIN D (CHOLECALCIFEROL) [Concomitant]
  6. TUMS (CALCIUM CARBONATE) [Concomitant]
  7. MYCELEX [Concomitant]
  8. PREDNISONE [Concomitant]

REACTIONS (2)
  - ASTHMA [None]
  - DRUG INEFFECTIVE [None]
